FAERS Safety Report 4958758-9 (Version None)
Quarter: 2006Q1

REPORT INFORMATION
  Report Type: 
  Country: None (occurrence: None)
  Receive Date: 20060127
  Receipt Date: 20050120
  Transmission Date: 20060701
  Serious: Yes (Hospitalization)
  Sender: FDA-Public Use
  Company Number: 05-01-0102

PATIENT
  Age: 41 Year
  Sex: Male

DRUGS (1)
  1. CLOZAPINE [Suspect]
     Indication: SCHIZOAFFECTIVE DISORDER
     Dosage: 25 - 500 MG QD ORAL
     Route: 048
     Dates: start: 20040801

REACTIONS (1)
  - TREATMENT NONCOMPLIANCE [None]
